FAERS Safety Report 24999351 (Version 1)
Quarter: 2025Q1

REPORT INFORMATION
  Report Type: Spontaneous
  Country: US (occurrence: US)
  Receive Date: 20250222
  Receipt Date: 20250222
  Transmission Date: 20250408
  Serious: No
  Sender: SANOFI AVENTIS
  Company Number: US-SA-2025SA046944

PATIENT
  Age: 75 Year
  Sex: Male

DRUGS (7)
  1. DUPIXENT [Suspect]
     Active Substance: DUPILUMAB
     Indication: Dermatitis atopic
     Dosage: 300 MG, QOW
     Route: 058
  2. DILTIAZEM HYDROCHLORIDE [Concomitant]
     Active Substance: DILTIAZEM HYDROCHLORIDE
  3. ASPIRIN [Concomitant]
     Active Substance: ASPIRIN
  4. DONEPEZIL HYDROCHLORIDE [Concomitant]
     Active Substance: DONEPEZIL HYDROCHLORIDE
  5. GABAPENTIN [Concomitant]
     Active Substance: GABAPENTIN
  6. LEXAPRO [Concomitant]
     Active Substance: ESCITALOPRAM OXALATE
  7. PANTOPRAZOLE SODIUM [Concomitant]
     Active Substance: PANTOPRAZOLE SODIUM

REACTIONS (6)
  - Skin fissures [Not Recovered/Not Resolved]
  - Dry skin [Not Recovered/Not Resolved]
  - Burning sensation [Not Recovered/Not Resolved]
  - Skin exfoliation [Not Recovered/Not Resolved]
  - Pruritus [Not Recovered/Not Resolved]
  - Product dose omission in error [Unknown]

NARRATIVE: CASE EVENT DATE: 20250201
